FAERS Safety Report 8876190 (Version 1)
Quarter: 2012Q4

REPORT INFORMATION
  Report Type: 
  Country: US (occurrence: US)
  Receive Date: 20121023
  Receipt Date: 20121023
  Transmission Date: 20130627
  Serious: No
  Sender: FDA-Public Use
  Company Number: US-TEVA-363496USA

PATIENT

DRUGS (1)
  1. TREANDA [Suspect]
     Route: 042

REACTIONS (1)
  - Blood uric acid increased [Unknown]
